FAERS Safety Report 12092687 (Version 1)
Quarter: 2016Q1

REPORT INFORMATION
  Report Type: Other
  Country: GB (occurrence: GB)
  Receive Date: 20160219
  Receipt Date: 20160219
  Transmission Date: 20160526
  Serious: Yes (Other)
  Sender: FDA-Public Use
  Company Number: GB-CIPLA LTD.-2016GB01351

PATIENT

DRUGS (2)
  1. FULTIUM-D3 [Concomitant]
     Dosage: UNK
     Route: 065
  2. CITALOPRAM [Suspect]
     Active Substance: CITALOPRAM HYDROBROMIDE
     Indication: OBSESSIVE-COMPULSIVE DISORDER
     Dosage: 30 MG, UNK
     Route: 048

REACTIONS (1)
  - Menstrual disorder [Not Recovered/Not Resolved]
